FAERS Safety Report 9738822 (Version 1)
Quarter: 2013Q4

REPORT INFORMATION
  Report Type: Spontaneous
  Country: US (occurrence: PR)
  Receive Date: 20131209
  Receipt Date: 20131209
  Transmission Date: 20140711
  Serious: No
  Sender: FDA-Public Use
  Company Number: US-BAYER-2013-150002

PATIENT
  Age: 57 Year
  Sex: Female

DRUGS (1)
  1. GADAVIST [Suspect]
     Indication: PRODUCT USED FOR UNKNOWN INDICATION
     Dosage: 8 ML, ONCE
     Route: 042
     Dates: start: 20131205, end: 20131205

REACTIONS (1)
  - Urticaria [Recovered/Resolved]
